FAERS Safety Report 19842034 (Version 1)
Quarter: 2021Q3

REPORT INFORMATION
  Report Type: Spontaneous
  Country: CA (occurrence: CA)
  Receive Date: 20210915
  Receipt Date: 20210915
  Transmission Date: 20211014
  Serious: Yes (Other)
  Sender: FDA-Public Use
  Company Number: CA-PFIZER INC-202101210775

PATIENT
  Age: 74 Year
  Sex: Female

DRUGS (2)
  1. SULFASALAZINE. [Suspect]
     Active Substance: SULFASALAZINE
     Dosage: 1 DF
  2. AMOXIL [Concomitant]
     Active Substance: AMOXICILLIN
     Dosage: 1 DF
     Dates: start: 20210828

REACTIONS (3)
  - Fatigue [Unknown]
  - Cystitis interstitial [Unknown]
  - Pain [Unknown]

NARRATIVE: CASE EVENT DATE: 2021
